FAERS Safety Report 14110639 (Version 3)
Quarter: 2017Q4

REPORT INFORMATION
  Report Type: Report from Study
  Country: IQ (occurrence: IQ)
  Receive Date: 20171020
  Receipt Date: 20171121
  Transmission Date: 20180321
  Serious: Yes (Hospitalization)
  Sender: FDA-Public Use
  Company Number: PHHY2017IQ151911

PATIENT
  Sex: Female

DRUGS (1)
  1. GLIVEC [Suspect]
     Active Substance: IMATINIB MESYLATE
     Indication: CHRONIC MYELOID LEUKAEMIA
     Dosage: 400 MG, QD
     Route: 048
     Dates: start: 2014

REACTIONS (5)
  - Breast fibroma [Unknown]
  - Pruritus generalised [Not Recovered/Not Resolved]
  - Breast pain [Not Recovered/Not Resolved]
  - Breast mass [Recovering/Resolving]
  - Hypersensitivity [Not Recovered/Not Resolved]
